FAERS Safety Report 15669548 (Version 1)
Quarter: 2018Q4

REPORT INFORMATION
  Report Type: Spontaneous
  Country: US (occurrence: US)
  Receive Date: 20181129
  Receipt Date: 20181129
  Transmission Date: 20190205
  Serious: No
  Sender: FDA-Public Use
  Company Number: US-TEVA-2018-US-978686

PATIENT
  Sex: Female

DRUGS (1)
  1. DROSPIRENONE W/ETHINYLESTRADIOL [Suspect]
     Active Substance: DROSPIRENONE\ETHINYL ESTRADIOL
     Indication: PREMENSTRUAL DYSPHORIC DISORDER
     Dosage: DROSPIRENONE 3 MG+ ETHINYLESTRADIOL 0.02 MG
     Route: 065

REACTIONS (3)
  - Fluid retention [Unknown]
  - Product substitution issue [Unknown]
  - Headache [Unknown]
